FAERS Safety Report 8553987-X (Version None)
Quarter: 2012Q3

REPORT INFORMATION
  Report Type: 
  Country: None (occurrence: None)
  Receive Date: 20120731
  Receipt Date: 20120716
  Transmission Date: 20120928
  Serious: Yes (Hospitalization)
  Sender: FDA-Public Use
  Company Number: DK-ARROW-2012-12900

PATIENT
  Sex: Male
  Weight: 107 kg

DRUGS (9)
  1. LOSARTAN POTASSIUM [Concomitant]
     Indication: HYPERTENSION
     Dosage: 100 MG, DAILY
     Route: 048
  2. LANSOPRAZOL ORIFARM [Concomitant]
     Indication: GASTROOESOPHAGEAL REFLUX DISEASE
     Dosage: 30 MG, DAILY
     Route: 048
  3. IBUMETIN [Concomitant]
     Indication: PAIN
     Dosage: 600 MG, TID
     Route: 048
  4. MOXONIDIN ACTAVIS [Concomitant]
     Indication: HYPERTENSION
     Dosage: 0.2 MG
     Route: 048
  5. SIMVASTATIN [Suspect]
     Indication: HYPERCHOLESTEROLAEMIA
     Dosage: 40 MG, DAILY
     Route: 048
     Dates: start: 20040101, end: 20090301
  6. AMLODIPINE [Concomitant]
     Indication: HYPERTENSION
     Dosage: 5 MG, DAILY
     Route: 048
  7. FUROSEMIDE [Concomitant]
     Indication: DIURETIC THERAPY
     Dosage: 40 MG
     Route: 048
  8. POTASSIUM CHLORIDE [Concomitant]
     Indication: MINERAL SUPPLEMENTATION
     Dosage: 750 MG, BID
     Route: 048
  9. CARVEDILOL ARROW [Concomitant]
     Indication: HYPERTENSION
     Dosage: 25 MG
     Route: 048

REACTIONS (5)
  - ARTHRALGIA [None]
  - PAIN IN EXTREMITY [None]
  - GOUT [None]
  - MYALGIA [None]
  - OEDEMA PERIPHERAL [None]
